FAERS Safety Report 21240028 (Version 1)
Quarter: 2022Q3

REPORT INFORMATION
  Report Type: Spontaneous
  Country: US (occurrence: None)
  Receive Date: 20220821
  Receipt Date: 20220821
  Transmission Date: 20221026
  Serious: No
  Sender: FDA-Public Use
  Company Number: None

PATIENT
  Age: 73 Year
  Sex: Female
  Weight: 56.25 kg

DRUGS (1)
  1. BELSOMRA [Suspect]
     Active Substance: SUVOREXANT
     Indication: Insomnia
     Dosage: OTHER QUANTITY : 1 TABLET(S);?FREQUENCY : AT BEDTIME;?
     Dates: start: 20220819, end: 20220821

REACTIONS (6)
  - Drug ineffective [None]
  - Abnormal dreams [None]
  - Nightmare [None]
  - Contusion [None]
  - Injury [None]
  - Abnormal behaviour [None]

NARRATIVE: CASE EVENT DATE: 20220821
